FAERS Safety Report 4268887-3 (Version None)
Quarter: 2004Q1

REPORT INFORMATION
  Report Type: 
  Country: None (occurrence: None)
  Receive Date: 20040108
  Receipt Date: 20040102
  Transmission Date: 20041129
  Serious: Yes (Other)
  Sender: FDA-Public Use
  Company Number: 2003184010US

PATIENT
  Age: 42 Year
  Sex: Female

DRUGS (2)
  1. DEPO-MEDROL [Suspect]
     Indication: SINUS DISORDER
     Dosage: INTRAMUSCULAR
     Route: 030
     Dates: start: 20031022, end: 20031022
  2. FLONASE [Suspect]
     Dates: start: 20031022, end: 20031030

REACTIONS (7)
  - BLINDNESS [None]
  - EYE PAIN [None]
  - EYE REDNESS [None]
  - INTRAOCULAR PRESSURE INCREASED [None]
  - LACRIMATION INCREASED [None]
  - PHOTOPHOBIA [None]
  - VISION BLURRED [None]
